FAERS Safety Report 20656803 (Version 1)
Quarter: 2022Q1

REPORT INFORMATION
  Report Type: Spontaneous
  Country: US (occurrence: US)
  Receive Date: 20220331
  Receipt Date: 20220331
  Transmission Date: 20220423
  Serious: No
  Sender: FDA-Public Use
  Company Number: US-BEIGENE USA INC-BGN-2022-003284

PATIENT

DRUGS (4)
  1. BRUKINSA [Suspect]
     Active Substance: ZANUBRUTINIB
     Indication: Waldenstrom^s macroglobulinaemia
     Dosage: 160 MILLIGRAM, BID
     Route: 048
     Dates: start: 20220113
  2. ASPIRIN [Suspect]
     Active Substance: ASPIRIN
     Indication: Cardiac disorder
     Dosage: 81 MILLIGRAM, QD
     Route: 048
  3. PEPCID [Concomitant]
     Active Substance: FAMOTIDINE
     Indication: Gastrooesophageal reflux disease
     Dosage: UNK
     Route: 048
  4. TURNSTYLE ANALGESIA [Concomitant]
     Indication: Gastrooesophageal reflux disease
     Dosage: UNK
     Route: 048

REACTIONS (9)
  - Headache [Unknown]
  - Increased tendency to bruise [Unknown]
  - Rash papular [Unknown]
  - Gastrooesophageal reflux disease [Unknown]
  - Dyspepsia [Unknown]
  - Abdominal distension [Unknown]
  - Flatulence [Unknown]
  - Insomnia [Unknown]
  - Musculoskeletal chest pain [Unknown]
